FAERS Safety Report 8078047-6 (Version None)
Quarter: 2012Q1

REPORT INFORMATION
  Report Type: 
  Country: None (occurrence: None)
  Receive Date: 20120127
  Receipt Date: 20110107
  Transmission Date: 20120608
  Serious: No
  Sender: FDA-Public Use
  Company Number: US-ABBOTT-11P-163-0695919-00

PATIENT
  Age: 59 Year
  Sex: Female

DRUGS (10)
  1. HUMIRA [Suspect]
     Indication: PSORIASIS
  2. FOLIC ACID [Concomitant]
     Indication: GOUT
  3. LOTENSIN [Concomitant]
     Indication: BLOOD PRESSURE
  4. BENADRYL [Concomitant]
     Indication: HYPERSENSITIVITY
  5. ZANAFLEX [Concomitant]
     Indication: PRODUCT USED FOR UNKNOWN INDICATION
  6. ZETIA [Concomitant]
     Indication: BLOOD CHOLESTEROL
  7. METHOTREXATE [Concomitant]
     Indication: PRODUCT USED FOR UNKNOWN INDICATION
  8. SIMVASTATIN [Concomitant]
     Indication: BLOOD CHOLESTEROL
  9. TRICOR [Concomitant]
     Indication: BLOOD CHOLESTEROL
  10. BENADRYL [Concomitant]
     Indication: SINUSITIS

REACTIONS (3)
  - PSORIASIS [None]
  - INJECTION SITE PAIN [None]
  - COGNITIVE DISORDER [None]
